FAERS Safety Report 10013613 (Version 2)
Quarter: 2014Q1

REPORT INFORMATION
  Report Type: Spontaneous
  Country: US (occurrence: US)
  Receive Date: 20140315
  Receipt Date: 20140315
  Transmission Date: 20141002
  Serious: Yes (Other)
  Sender: FDA-Public Use
  Company Number: US-GE HEALTHCARE MEDICAL DIAGNOSTICS-OSCN-PR-0808S-0511

PATIENT
  Age: 63 Year
  Sex: Female

DRUGS (20)
  1. OMNISCAN [Suspect]
     Indication: RENAL CYST
     Dates: start: 20050718, end: 20050718
  2. OMNISCAN [Suspect]
     Indication: RENAL FAILURE
     Dates: start: 20060706, end: 20060706
  3. EPOGEN [Concomitant]
  4. PROCRIT [Concomitant]
  5. LISINOPRIL [Concomitant]
  6. ASPIRIN [Concomitant]
  7. FERROUS SULFATE [Concomitant]
  8. DIOVAN [Concomitant]
  9. HECTOROL [Concomitant]
  10. METOPROLOL [Concomitant]
  11. LASIX [Concomitant]
  12. COUMADIN [Concomitant]
  13. VENOFER [Concomitant]
  14. SENSIPAR [Concomitant]
  15. FOSRENOL [Concomitant]
  16. PREDNISONE [Concomitant]
  17. CELLCEPT [Concomitant]
  18. PROGRAF [Concomitant]
  19. VALTREX [Concomitant]
  20. BACTRIM [Concomitant]

REACTIONS (1)
  - Nephrogenic systemic fibrosis [Not Recovered/Not Resolved]
